FAERS Safety Report 9370964 (Version 3)
Quarter: 2013Q3

REPORT INFORMATION
  Report Type: Spontaneous
  Country: JP (occurrence: JP)
  Receive Date: 20130627
  Receipt Date: 20130721
  Transmission Date: 20140515
  Serious: No
  Sender: FDA-Public Use
  Company Number: JP-AMGEN-JPNSP2013044405

PATIENT
  Age: 68 Year
  Sex: Female

DRUGS (6)
  1. ARANESP [Suspect]
     Indication: NEPHROGENIC ANAEMIA
     Dosage: 60 MUG, 1X/WEEK
     Route: 042
     Dates: start: 20130515, end: 20130610
  2. MIRCERA [Suspect]
     Indication: NEPHROGENIC ANAEMIA
     Dosage: 100 MUG, UNK
     Route: 065
     Dates: start: 201209, end: 201304
  3. MIRCERA [Suspect]
     Dosage: 100 MUG, UNK
     Route: 065
     Dates: start: 201209, end: 201304
  4. GASTER D [Concomitant]
     Dosage: 10 MG, UNK
     Route: 048
  5. PREDONINE                          /00016201/ [Concomitant]
     Dosage: 1.5 DF, UNK
     Route: 048
  6. LIPOVAS                            /00848101/ [Concomitant]
     Dosage: 2 DF, UNK
     Route: 048

REACTIONS (1)
  - Drug ineffective [Not Recovered/Not Resolved]
